FAERS Safety Report 7971077-1 (Version None)
Quarter: 2011Q4

REPORT INFORMATION
  Report Type: 
  Country: None (occurrence: None)
  Receive Date: 20111212
  Receipt Date: 20111212
  Transmission Date: 20120403
  Serious: Yes (Other)
  Sender: FDA-Public Use
  Company Number: None

PATIENT
  Age: 32 Year
  Sex: Male
  Weight: 163.29 kg

DRUGS (2)
  1. ULORIC [Suspect]
     Indication: GOUT
     Dosage: 40MG
     Route: 048
     Dates: start: 20111015, end: 20111205
  2. URSODIOL [Concomitant]
     Route: 048

REACTIONS (7)
  - INSOMNIA [None]
  - ANXIETY [None]
  - DYSPNOEA [None]
  - PANIC ATTACK [None]
  - HEART RATE INCREASED [None]
  - TACHYPHRENIA [None]
  - DEPRESSION [None]
